FAERS Safety Report 20406706 (Version 1)
Quarter: 2022Q1

REPORT INFORMATION
  Report Type: Spontaneous
  Country: US (occurrence: US)
  Receive Date: 20220131
  Receipt Date: 20220131
  Transmission Date: 20220423
  Serious: Yes (Other)
  Sender: FDA-Public Use
  Company Number: US-PFIZER INC-202200107618

PATIENT

DRUGS (2)
  1. AMIODARONE HYDROCHLORIDE [Interacting]
     Active Substance: AMIODARONE HYDROCHLORIDE
     Dosage: UNK
  2. LENVIMA [Interacting]
     Active Substance: LENVATINIB
     Dosage: 8 MG, DAILY
     Route: 048

REACTIONS (2)
  - Atrial flutter [Unknown]
  - Drug interaction [Unknown]

NARRATIVE: CASE EVENT DATE: 20211230
